FAERS Safety Report 4763116-6 (Version None)
Quarter: 2005Q3

REPORT INFORMATION
  Report Type: 
  Country: None (occurrence: None)
  Receive Date: 20050826
  Receipt Date: 20041109
  Transmission Date: 20060218
  Serious: Yes (Disabling)
  Sender: FDA-Public Use
  Company Number: USA-2004-0013571

PATIENT
  Age: 70 Year
  Sex: Female
  Weight: 77.1 kg

DRUGS (2)
  1. OXYCONTIN [Suspect]
     Indication: PAIN
     Dosage: 20 MG Q12H
  2. NAPROSYN [Concomitant]

REACTIONS (3)
  - DRUG INEFFECTIVE [None]
  - NAUSEA [None]
  - VOMITING [None]
